FAERS Safety Report 10424338 (Version 2)
Quarter: 2014Q3

REPORT INFORMATION
  Report Type: Spontaneous
  Country: IT (occurrence: IT)
  Receive Date: 20140902
  Receipt Date: 20140914
  Transmission Date: 20150326
  Serious: Yes (Hospitalization)
  Sender: FDA-Public Use
  Company Number: IT-BRISTOL-MYERS SQUIBB COMPANY-21355581

PATIENT
  Age: 78 Year
  Sex: Male

DRUGS (9)
  1. ZYLORIC [Concomitant]
     Active Substance: ALLOPURINOL
     Route: 048
  2. EPREX [Concomitant]
     Active Substance: ERYTHROPOIETIN
     Dosage: 4000U/ML.
  3. SIMVASTATIN. [Concomitant]
     Active Substance: SIMVASTATIN
     Route: 048
  4. COUMADIN [Suspect]
     Active Substance: WARFARIN SODIUM
     Indication: ATRIAL FIBRILLATION
     Route: 048
  5. LASIX [Concomitant]
     Active Substance: FUROSEMIDE
     Dosage: ^25 MG TABS^-75 MG
     Route: 048
  6. LANOXIN [Concomitant]
     Active Substance: DIGOXIN
  7. RAMIPRIL. [Concomitant]
     Active Substance: RAMIPRIL
  8. TRAVATAN [Concomitant]
     Active Substance: TRAVOPROST
  9. HUMALOG [Concomitant]
     Active Substance: INSULIN LISPRO

REACTIONS (2)
  - Cerebral haemorrhage [Recovering/Resolving]
  - Craniocerebral injury [Unknown]

NARRATIVE: CASE EVENT DATE: 20130814
